FAERS Safety Report 10441573 (Version 3)
Quarter: 2015Q2

REPORT INFORMATION
  Report Type: Report from Study
  Country: JP (occurrence: JP)
  Receive Date: 20140909
  Receipt Date: 20150406
  Transmission Date: 20150821
  Serious: Yes (Other)
  Sender: FDA-Public Use
  Company Number: JP-JNJFOC-20140905606

PATIENT
  Age: 49 Year
  Sex: Female
  Weight: 57 kg

DRUGS (9)
  1. PEGASYS [Suspect]
     Active Substance: PEGINTERFERON ALFA-2A
     Indication: CHRONIC HEPATITIS C
     Route: 058
     Dates: start: 20140415, end: 20140618
  2. PATANOL [Concomitant]
     Active Substance: OLOPATADINE HYDROCHLORIDE
     Dosage: OPHTHALMIC (UNSPECIFIED)
     Route: 047
     Dates: end: 20140514
  3. RIBAVIRIN. [Suspect]
     Active Substance: RIBAVIRIN
     Indication: CHRONIC HEPATITIS C
     Route: 048
     Dates: start: 20140415, end: 20140722
  4. PEGASYS [Suspect]
     Active Substance: PEGINTERFERON ALFA-2A
     Indication: CHRONIC HEPATITIS C
     Route: 058
     Dates: start: 20140625
  5. NORVASC [Concomitant]
     Active Substance: AMLODIPINE BESYLATE
     Route: 048
  6. GASTER [Concomitant]
     Active Substance: FAMOTIDINE
     Route: 048
  7. SOVRIAD [Suspect]
     Active Substance: SIMEPREVIR
     Indication: CHRONIC HEPATITIS C
     Route: 048
     Dates: start: 20140415, end: 20140709
  8. RIBAVIRIN. [Suspect]
     Active Substance: RIBAVIRIN
     Indication: CHRONIC HEPATITIS C
     Route: 048
     Dates: start: 20140723
  9. KETOTEN [Concomitant]
     Dosage: NASAL (UNSPECIFIED)
     Route: 045
     Dates: end: 20140514

REACTIONS (7)
  - Platelet count decreased [Recovered/Resolved]
  - Alanine aminotransferase increased [Recovering/Resolving]
  - Pyrexia [Recovered/Resolved]
  - Blood bilirubin increased [Recovered/Resolved]
  - Splenomegaly [Recovered/Resolved]
  - Neutrophil count decreased [Recovering/Resolving]
  - Aspartate aminotransferase increased [Recovering/Resolving]

NARRATIVE: CASE EVENT DATE: 20140415
